FAERS Safety Report 7330648-6 (Version None)
Quarter: 2011Q1

REPORT INFORMATION
  Report Type: 
  Country: None (occurrence: None)
  Receive Date: 20110304
  Receipt Date: 20110225
  Transmission Date: 20110831
  Serious: Yes (Death)
  Sender: FDA-Public Use
  Company Number: GB-TEVA-268665ISR

PATIENT
  Age: 95 Year
  Sex: Male
  Weight: 60 kg

DRUGS (1)
  1. PREDNISOLONE [Suspect]
     Indication: IDIOPATHIC THROMBOCYTOPENIC PURPURA
     Route: 048
     Dates: start: 20100810

REACTIONS (2)
  - GASTROINTESTINAL HAEMORRHAGE [None]
  - PRODUCT SUBSTITUTION ISSUE [None]
